FAERS Safety Report 5856111-7 (Version None)
Quarter: 2008Q3

REPORT INFORMATION
  Report Type: 
  Country: None (occurrence: None)
  Receive Date: 20080821
  Receipt Date: 20080821
  Transmission Date: 20090109
  Serious: No
  Sender: FDA-Public Use
  Company Number: None

PATIENT
  Age: 85 Year
  Sex: Male

DRUGS (3)
  1. LISINOPRIL [Suspect]
     Indication: DIABETES MELLITUS
     Dosage: 40 MG EVERYDAY PO
     Route: 048
     Dates: start: 20010119, end: 20080705
  2. LISINOPRIL [Suspect]
     Indication: HYPERTENSION
     Dosage: 40 MG EVERYDAY PO
     Route: 048
     Dates: start: 20010119, end: 20080705
  3. SPIRONOLACTONE [Suspect]
     Dosage: 12.5 MG EVERY DAY PO
     Route: 048
     Dates: start: 20080131, end: 20080705

REACTIONS (2)
  - HYPERKALAEMIA [None]
  - RENAL FAILURE ACUTE [None]
